FAERS Safety Report 5623556-X (Version None)
Quarter: 2008Q1

REPORT INFORMATION
  Report Type: 
  Country: None (occurrence: None)
  Receive Date: 20080212
  Receipt Date: 20080201
  Transmission Date: 20080703
  Serious: Yes (Other)
  Sender: FDA-Public Use
  Company Number: JP-PFIZER INC-2008012123

PATIENT
  Age: 56 Year
  Sex: Male
  Weight: 67 kg

DRUGS (1)
  1. SILDENAFIL CITRATE [Suspect]
     Dosage: DAILY DOSE:25MG
     Route: 048

REACTIONS (6)
  - ARRHYTHMIA [None]
  - ERYTHEMA [None]
  - HOT FLUSH [None]
  - MYOCARDIAL INFARCTION [None]
  - VENTRICULAR ARRHYTHMIA [None]
  - VENTRICULAR EXTRASYSTOLES [None]
